FAERS Safety Report 4374318-5 (Version None)
Quarter: 2004Q2

REPORT INFORMATION
  Report Type: 
  Country: None (occurrence: None)
  Receive Date: 20040604
  Receipt Date: 20040601
  Transmission Date: 20050107
  Serious: Yes (Hospitalization)
  Sender: FDA-Public Use
  Company Number: MK200406-0007-1

PATIENT
  Sex: Female

DRUGS (1)
  1. METHADOSE [Suspect]
     Dosage: 0.075MG BID

REACTIONS (6)
  - ACCIDENTAL OVERDOSE [None]
  - AGITATION [None]
  - ANXIETY [None]
  - CONSTIPATION [None]
  - MEDICATION ERROR [None]
  - RESPIRATORY DISTRESS [None]
